FAERS Safety Report 8010145-5 (Version None)
Quarter: 2011Q4

REPORT INFORMATION
  Report Type: 
  Country: None (occurrence: None)
  Receive Date: 20111221
  Receipt Date: 20111216
  Transmission Date: 20120403
  Serious: Yes (Hospitalization)
  Sender: FDA-Public Use
  Company Number: SP05405

PATIENT
  Age: 63 Year
  Sex: Female
  Weight: 40.8237 kg

DRUGS (3)
  1. XIFAXAN [Suspect]
     Indication: SMALL INTESTINAL BACTERIAL OVERGROWTH
     Dosage: 1100 MG (550 MG,2 IN 1 D),ORAL ; 550 MG (550 MG,1 IN 1 D),ORAL
     Route: 048
     Dates: start: 20111210, end: 20111214
  2. XIFAXAN [Suspect]
     Indication: SMALL INTESTINAL BACTERIAL OVERGROWTH
     Dosage: 1100 MG (550 MG,2 IN 1 D),ORAL ; 550 MG (550 MG,1 IN 1 D),ORAL
     Route: 048
     Dates: start: 20111209, end: 20111210
  3. ATIVAN [Concomitant]

REACTIONS (4)
  - WRONG TECHNIQUE IN DRUG USAGE PROCESS [None]
  - DRY MOUTH [None]
  - MALNUTRITION [None]
  - BLOOD POTASSIUM DECREASED [None]
